FAERS Safety Report 12742694 (Version 1)
Quarter: 2016Q3

REPORT INFORMATION
  Report Type: Spontaneous
  Country: US (occurrence: US)
  Receive Date: 20160914
  Receipt Date: 20160914
  Transmission Date: 20161109
  Serious: Yes (Hospitalization, Disabling, Other)
  Sender: FDA-Public Use
  Company Number: US-009507513-1103USA00638

PATIENT
  Sex: Female
  Weight: 65.77 kg

DRUGS (7)
  1. FOSAMAX [Suspect]
     Active Substance: ALENDRONATE SODIUM
     Indication: OSTEOPENIA
     Dosage: 10 MG, UNK
     Route: 048
     Dates: start: 20000409, end: 200202
  2. FOSAMAX [Suspect]
     Active Substance: ALENDRONATE SODIUM
     Dosage: 70 MG, QW
     Route: 048
     Dates: start: 200711
  3. BONIVA [Suspect]
     Active Substance: IBANDRONATE SODIUM
     Indication: OSTEOPOROSIS
     Dosage: UNK UNK, QM
     Route: 048
     Dates: start: 2007, end: 201002
  4. FOSAMAX [Suspect]
     Active Substance: ALENDRONATE SODIUM
     Indication: OSTEOPOROSIS PROPHYLAXIS
     Dosage: 10 MG, UNK
     Route: 048
     Dates: start: 19990817, end: 2009
  5. FOSAMAX [Suspect]
     Active Substance: ALENDRONATE SODIUM
     Dosage: 70 MG, UNK
     Route: 048
     Dates: start: 200204, end: 200505
  6. HORMONES (UNSPECIFIED) [Concomitant]
     Active Substance: UNSPECIFIED INGREDIENT
     Dates: start: 1995, end: 2002
  7. FOSAMAX [Suspect]
     Active Substance: ALENDRONATE SODIUM
     Dosage: 70 MG, UNK
     Route: 048
     Dates: start: 19990817, end: 2009

REACTIONS (75)
  - Blood cholesterol increased [Unknown]
  - Erythema [Unknown]
  - Back pain [Unknown]
  - Fibromyalgia [Unknown]
  - Constipation [Unknown]
  - Cardiac stress test abnormal [Unknown]
  - Nicotine dependence [Unknown]
  - Malaise [Unknown]
  - Mitral valve prolapse [Unknown]
  - Tinnitus [Unknown]
  - Colitis microscopic [Unknown]
  - Groin pain [Unknown]
  - Periprosthetic fracture [Recovered/Resolved]
  - Hypertension [Unknown]
  - Fatigue [Unknown]
  - Osteoporosis [Unknown]
  - Swelling [Unknown]
  - Weight decreased [Unknown]
  - Liver function test increased [Unknown]
  - Gastrooesophageal reflux disease [Unknown]
  - Renal artery stenosis [Unknown]
  - Pancreatitis [Unknown]
  - Rib fracture [Recovering/Resolving]
  - Rib fracture [Unknown]
  - Arthropathy [Unknown]
  - Emphysema [Unknown]
  - Herpes zoster [Unknown]
  - Suicide attempt [Recovered/Resolved]
  - Gastrointestinal disorder [Unknown]
  - Overdose [Unknown]
  - Cholelithiasis [Unknown]
  - Chest pain [Unknown]
  - Polyp [Unknown]
  - Urinary retention [Unknown]
  - Mitral valve incompetence [Unknown]
  - Hypercalcaemia [Unknown]
  - Decreased appetite [Unknown]
  - Electrolyte imbalance [Unknown]
  - Dermatitis [Unknown]
  - Vaginal polyp [Unknown]
  - Contusion [Unknown]
  - Osteoarthritis [Unknown]
  - Bursitis [Unknown]
  - Femur fracture [Unknown]
  - Pulmonary mass [Unknown]
  - Anaemia postoperative [Unknown]
  - Diffuse alopecia [Unknown]
  - Osteoarthritis [Unknown]
  - Haemoglobin decreased [Unknown]
  - Femur fracture [Unknown]
  - Fall [Unknown]
  - Injury [Unknown]
  - Osteopenia [Unknown]
  - Anxiety [Unknown]
  - Cholecystitis acute [Unknown]
  - Bladder disorder [Unknown]
  - Pain [Unknown]
  - Electrocardiogram abnormal [Unknown]
  - Liver function test abnormal [Unknown]
  - Palpitations [Unknown]
  - Arthralgia [Unknown]
  - Pain in extremity [Unknown]
  - Foot fracture [Unknown]
  - Dental caries [Unknown]
  - Osteoarthritis [Unknown]
  - Arthropathy [Unknown]
  - Decreased interest [Unknown]
  - Vitamin D deficiency [Unknown]
  - Abnormal dreams [Unknown]
  - Anaemia postoperative [Unknown]
  - Fibrocystic breast disease [Unknown]
  - Musculoskeletal discomfort [Unknown]
  - Foot fracture [Recovering/Resolving]
  - Fracture delayed union [Recovering/Resolving]
  - Systolic hypertension [Unknown]

NARRATIVE: CASE EVENT DATE: 2000
